FAERS Safety Report 5273649-4 (Version None)
Quarter: 2007Q1

REPORT INFORMATION
  Report Type: 
  Country: None (occurrence: None)
  Receive Date: 20070321
  Receipt Date: 20070321
  Transmission Date: 20070707
  Serious: Yes (Hospitalization)
  Sender: FDA-Public Use
  Company Number: None

PATIENT
  Sex: Male

DRUGS (12)
  1. REVLIMID [Suspect]
     Indication: MULTIPLE MYELOMA
     Dosage: 25MG DAILY 21D/28D PO
     Route: 048
  2. REVLIMID [Suspect]
     Indication: MULTIPLE MYELOMA
     Dosage: 25MG DAILY 21D/28D PO
     Route: 048
  3. FUROSEMIDE [Concomitant]
  4. CHERATUSSIN AC [Concomitant]
  5. CLONIDINE [Concomitant]
  6. DOXYCYCLINE [Concomitant]
  7. GABAPENTIN [Concomitant]
  8. WARFARIN SODIUM [Concomitant]
  9. ATENOLOL [Concomitant]
  10. DEXAMETHASONE [Concomitant]
  11. METHADONE HCL [Concomitant]
  12. NIFEDIPINE [Concomitant]

REACTIONS (3)
  - ASTHMA [None]
  - CONDITION AGGRAVATED [None]
  - RESPIRATORY FAILURE [None]
